FAERS Safety Report 6683912-8 (Version None)
Quarter: 2010Q2

REPORT INFORMATION
  Report Type: 
  Country: None (occurrence: None)
  Receive Date: 20100416
  Receipt Date: 20100406
  Transmission Date: 20101027
  Serious: Yes (Other)
  Sender: FDA-Public Use
  Company Number: SE-PFIZER INC-2010043106

PATIENT
  Age: 74 Year
  Sex: Female

DRUGS (2)
  1. SUTENT [Suspect]
     Indication: RENAL CANCER
     Dosage: UNK
     Dates: end: 20100402
  2. SUTENT [Suspect]
     Indication: METASTASES TO LUNG

REACTIONS (2)
  - GINGIVAL BLEEDING [None]
  - OSTEONECROSIS [None]
